FAERS Safety Report 8044376 (Version 2)
Quarter: 2013Q1

REPORT INFORMATION
  Report Type: Spontaneous
  Country: NZ (occurrence: NZ)
  Receive Date: 20110719
  Receipt Date: 20130220
  Transmission Date: 20140127
  Serious: Yes (Life-Threatening, Hospitalization)
  Sender: FDA-Public Use
  Company Number: NZ-ASTRAZENECA-2011SE42282

PATIENT
  Age: 28 Year
  Sex: Female

DRUGS (5)
  1. QUETIAPINE [Suspect]
     Indication: DEPRESSION
     Route: 048
     Dates: end: 201001
  2. QUETIAPINE [Suspect]
     Indication: BORDERLINE PERSONALITY DISORDER
     Route: 048
     Dates: end: 201001
  3. QUETIAPINE [Suspect]
     Indication: ANXIETY
     Route: 048
     Dates: end: 201001
  4. VENLAFAXINE [Concomitant]
     Indication: DEPRESSION
  5. VENLAFAXINE [Concomitant]
     Indication: BORDERLINE PERSONALITY DISORDER

REACTIONS (1)
  - Congestive cardiomyopathy [Recovering/Resolving]
